FAERS Safety Report 19460181 (Version 1)
Quarter: 2021Q2

REPORT INFORMATION
  Report Type: Spontaneous
  Country: JP (occurrence: JP)
  Receive Date: 20210625
  Receipt Date: 20210625
  Transmission Date: 20210717
  Serious: Yes (Hospitalization, Other)
  Sender: FDA-Public Use
  Company Number: JP-REGENERON PHARMACEUTICALS, INC.-2021-35259

PATIENT

DRUGS (9)
  1. EYLEA [Suspect]
     Active Substance: AFLIBERCEPT
     Dosage: 0.05ML(LEFT EYE),ONCE
     Route: 031
     Dates: start: 20181009, end: 20181009
  2. EYLEA [Suspect]
     Active Substance: AFLIBERCEPT
     Dosage: 0.05ML(LEFT EYE),ONCE
     Route: 031
     Dates: start: 20180227, end: 20180227
  3. EYLEA [Suspect]
     Active Substance: AFLIBERCEPT
     Dosage: 0.05ML(LEFT EYE),ONCE
     Route: 031
     Dates: start: 20180717, end: 20180717
  4. EYLEA [Suspect]
     Active Substance: AFLIBERCEPT
     Dosage: 0.05ML(LEFT EYE),ONCE
     Route: 031
     Dates: start: 20170815, end: 20170815
  5. EYLEA [Suspect]
     Active Substance: AFLIBERCEPT
     Dosage: 0.05ML(LEFT EYE),ONCE
     Route: 031
     Dates: start: 20180522, end: 20180522
  6. EYLEA [Suspect]
     Active Substance: AFLIBERCEPT
     Indication: RETINAL VEIN OCCLUSION
     Dosage: 0.05ML(LEFT EYE),ONCE
     Route: 031
     Dates: start: 20170615, end: 20170615
  7. EYLEA [Suspect]
     Active Substance: AFLIBERCEPT
     Dosage: 0.05ML(LEFT EYE),ONCE
     Route: 031
     Dates: start: 20171208, end: 20171208
  8. EYLEA [Suspect]
     Active Substance: AFLIBERCEPT
     Dosage: 0.05ML(LEFT EYE),ONCE
     Route: 031
  9. EYLEA [Suspect]
     Active Substance: AFLIBERCEPT
     Dosage: 0.05ML(LEFT EYE),ONCE
     Route: 031
     Dates: start: 20170711, end: 20170711

REACTIONS (2)
  - Cerebral infarction [Recovering/Resolving]
  - Hemiplegia [Unknown]

NARRATIVE: CASE EVENT DATE: 20200822
